FAERS Safety Report 17094052 (Version 1)
Quarter: 2019Q4

REPORT INFORMATION
  Report Type: Spontaneous
  Country: PR (occurrence: PR)
  Receive Date: 20191129
  Receipt Date: 20191129
  Transmission Date: 20200122
  Serious: Yes (Death, Hospitalization)
  Sender: FDA-Public Use
  Company Number: PR-MYLANLABS-2019M1115523

PATIENT
  Age: 74 Year
  Sex: Male

DRUGS (1)
  1. PIPERACILLIN/TAZOBACTAM [Suspect]
     Active Substance: PIPERACILLIN SODIUM\TAZOBACTAM SODIUM
     Indication: PRODUCT USED FOR UNKNOWN INDICATION
     Dosage: UNK
     Route: 065

REACTIONS (6)
  - Morganella infection [Unknown]
  - Hypoalbuminaemia [Unknown]
  - Anaemia [Unknown]
  - Pulmonary oedema [Unknown]
  - Sepsis [Unknown]
  - Toxic epidermal necrolysis [Fatal]
